FAERS Safety Report 12136491 (Version 3)
Quarter: 2016Q2

REPORT INFORMATION
  Report Type: Report from Study
  Country: PK (occurrence: PK)
  Receive Date: 20160302
  Receipt Date: 20160401
  Transmission Date: 20160815
  Serious: Yes (Other)
  Sender: FDA-Public Use
  Company Number: PHHY2016PK027216

PATIENT
  Age: 62 Year
  Sex: Female

DRUGS (2)
  1. ACLASTA [Suspect]
     Active Substance: ZOLEDRONIC ACID
     Indication: OSTEOPOROSIS
     Dosage: 1 DF, Q12MO
     Route: 042
     Dates: start: 20100403
  2. ACLASTA [Suspect]
     Active Substance: ZOLEDRONIC ACID
     Dosage: 1 DF, UNK
     Route: 041
     Dates: start: 20130403

REACTIONS (4)
  - Abasia [Unknown]
  - Squamous cell carcinoma of the oral cavity [Recovered/Resolved]
  - Mouth ulceration [Unknown]
  - Fall [Unknown]

NARRATIVE: CASE EVENT DATE: 201408
